FAERS Safety Report 20730772 (Version 2)
Quarter: 2024Q2

REPORT INFORMATION
  Report Type: Spontaneous
  Country: US (occurrence: US)
  Receive Date: 20220420
  Receipt Date: 20240415
  Transmission Date: 20240716
  Serious: No
  Sender: FDA-Public Use
  Company Number: US-ASTELLAS-2021US015687

PATIENT
  Age: 33 Year
  Sex: Female

DRUGS (8)
  1. LEXISCAN [Suspect]
     Active Substance: REGADENOSON
     Indication: Positron emission tomogram
     Dosage: UNK UNK, UNKNOWN FREQ.(0.4 DOSE, RIGHT FOREARM)
     Route: 042
     Dates: start: 20210419, end: 20210419
  2. LEXISCAN [Suspect]
     Active Substance: REGADENOSON
     Indication: Positron emission tomogram
     Dosage: UNK UNK, UNKNOWN FREQ.(0.4 DOSE, RIGHT FOREARM)
     Route: 042
     Dates: start: 20210419, end: 20210419
  3. LEXISCAN [Suspect]
     Active Substance: REGADENOSON
     Indication: Positron emission tomogram
     Dosage: UNK UNK, UNKNOWN FREQ.(0.4 DOSE, RIGHT FOREARM)
     Route: 042
     Dates: start: 20210419, end: 20210419
  4. LEXISCAN [Suspect]
     Active Substance: REGADENOSON
     Indication: Positron emission tomogram
     Dosage: UNK UNK, UNKNOWN FREQ.(0.4 DOSE, RIGHT FOREARM)
     Route: 042
     Dates: start: 20210419, end: 20210419
  5. LEXISCAN [Suspect]
     Active Substance: REGADENOSON
     Dosage: UNK, UNKNOWN FREQ. (0.4 DOSE, RIGHT FOREARM)
     Route: 042
     Dates: start: 20210429, end: 20210429
  6. LEXISCAN [Suspect]
     Active Substance: REGADENOSON
     Dosage: UNK, UNKNOWN FREQ. (0.4 DOSE, RIGHT FOREARM)
     Route: 042
     Dates: start: 20210429, end: 20210429
  7. LEXISCAN [Suspect]
     Active Substance: REGADENOSON
     Dosage: UNK, UNKNOWN FREQ. (0.4 DOSE, RIGHT FOREARM)
     Route: 042
     Dates: start: 20210429, end: 20210429
  8. LEXISCAN [Suspect]
     Active Substance: REGADENOSON
     Dosage: UNK, UNKNOWN FREQ. (0.4 DOSE, RIGHT FOREARM)
     Route: 042
     Dates: start: 20210429, end: 20210429

REACTIONS (14)
  - Vomiting projectile [Recovered/Resolved]
  - Heart rate decreased [Recovered/Resolved]
  - Nausea [Recovered/Resolved]
  - Dyspnoea [Recovered/Resolved]
  - Chest discomfort [Recovered/Resolved]
  - Feeling hot [Recovered/Resolved]
  - Flushing [Recovered/Resolved]
  - Nausea [Recovered/Resolved]
  - Dyspnoea [Recovered/Resolved]
  - Chest discomfort [Recovered/Resolved]
  - Feeling hot [Recovered/Resolved]
  - Flushing [Recovered/Resolved]
  - Incorrect product administration duration [Recovered/Resolved]
  - Incorrect product administration duration [Recovered/Resolved]

NARRATIVE: CASE EVENT DATE: 20210419
